FAERS Safety Report 22335517 (Version 1)
Quarter: 2023Q2

REPORT INFORMATION
  Report Type: Other
  Country: DE (occurrence: DE)
  Receive Date: 20230518
  Receipt Date: 20230518
  Transmission Date: 20230721
  Serious: Yes (Hospitalization, Disabling, Congenital Anomaly, Other)
  Sender: FDA-Public Use
  Company Number: DE-MACLEODS PHARMACEUTICALS US LTD-MAC2023041303

PATIENT

DRUGS (9)
  1. ARIPIPRAZOLE [Suspect]
     Active Substance: ARIPIPRAZOLE
     Indication: Product used for unknown indication
     Dosage: 5 MILLIGRAM, QD (1 {TRIMESTER}, 0. - 39.3. GESTATIONAL WEEK)
     Route: 064
     Dates: start: 20210120, end: 20211023
  2. BISOPROLOL [Suspect]
     Active Substance: BISOPROLOL
     Indication: Product used for unknown indication
     Dosage: 3.75 MILLIGRAM, QD(1 {TRIMESTER, 0. - 39.3. GESTATIONAL WEEK)
     Route: 064
     Dates: start: 20210120, end: 20211023
  3. OMEPRAZOLE [Suspect]
     Active Substance: OMEPRAZOLE
     Indication: Product used for unknown indication
     Dosage: 40 MILLIGRAM, QD(1 {TRIMESTER}, 0. - 39.3. GESTATIONAL WEEK)
     Route: 064
     Dates: start: 20210120, end: 20211023
  4. SERTRALINE [Suspect]
     Active Substance: SERTRALINE HYDROCHLORIDE
     Indication: Product used for unknown indication
     Dosage: 150 MILLIGRAM, QD(1 {TRIMESTER}, 0. - 22.2. GESTATIONAL WEEK)
     Route: 064
  5. TOZINAMERAN [Suspect]
     Active Substance: TOZINAMERAN
     Indication: Product used for unknown indication
     Dosage: UNK(2 {TRIMESTER}, 22. - 23. GESTATIONAL WEEK)
     Route: 064
  6. DINOPROSTONE [Suspect]
     Active Substance: DINOPROSTONE
     Indication: Product used for unknown indication
     Dosage: UNK(3 {TRIMESTER}, TRIMESTER: INTRAPARTUM)
     Route: 064
  7. ACTRAPID [Suspect]
     Active Substance: INSULIN HUMAN
     Indication: Product used for unknown indication
     Dosage: UNK(3 {TRIMESTER}, 42 [I.E./D ]/ 38-42 U/D) 34. - 39.3. GESTATIONAL WEEK
     Route: 064
  8. PROTAPHANE [Suspect]
     Active Substance: INSULIN HUMAN
     Indication: Product used for unknown indication
     Dosage: UNK(18, 3 {TRIMESTER}, I.E./D ]/ 14-18 U/D)34. - 39.3. GESTATIONAL WEEK
     Route: 064
  9. OXYTOCIN [Suspect]
     Active Substance: OXYTOCIN
     Indication: Product used for unknown indication
     Dosage: UNK(3 {TRIMESTER, TRIMESTER: INTRAPARTUM)
     Route: 064

REACTIONS (4)
  - Small for dates baby [Not Recovered/Not Resolved]
  - Pulmonary artery stenosis [Not Recovered/Not Resolved]
  - Ventricular septal defect [Not Recovered/Not Resolved]
  - Foetal exposure during pregnancy [Unknown]
